FAERS Safety Report 5129518-3 (Version None)
Quarter: 2006Q4

REPORT INFORMATION
  Report Type: 
  Country: None (occurrence: None)
  Receive Date: 20061012
  Receipt Date: 20060923
  Transmission Date: 20070319
  Serious: Yes (Other)
  Sender: FDA-Public Use
  Company Number: 2006087611

PATIENT
  Sex: Female
  Weight: 72.5755 kg

DRUGS (5)
  1. DOXEPIN HCL [Suspect]
     Indication: RASH
     Dates: start: 20010101
  2. ZOLOFT [Suspect]
     Indication: FIBROMYALGIA
  3. ZYRTEC [Suspect]
     Indication: RASH
     Dosage: ORAL
     Route: 048
     Dates: start: 20010101
  4. ZOCOR [Suspect]
  5. TRIIAMCINOLONE        (TRIAMCINOLONE) [Suspect]
     Indication: RASH
     Dates: start: 20010101

REACTIONS (1)
  - DRUG ERUPTION [None]
